FAERS Safety Report 6153503-6 (Version None)
Quarter: 2009Q2

REPORT INFORMATION
  Report Type: 
  Country: None (occurrence: None)
  Receive Date: 20090413
  Receipt Date: 20090408
  Transmission Date: 20091009
  Serious: Yes (Death, Hospitalization, Other)
  Sender: FDA-Public Use
  Company Number: PHHY2009BR13480

PATIENT
  Age: 80 Year
  Sex: Male

DRUGS (6)
  1. EXELON [Suspect]
     Indication: DEMENTIA ALZHEIMER'S TYPE
     Dosage: 9 MG/5CM2, 1 PATCH EVERY 24 HOURS
     Route: 062
     Dates: start: 20080901, end: 20081201
  2. EXELON [Suspect]
     Dosage: 18 MG/10 CM2, 1 PATCH EVERY 12 HOURS
     Route: 062
     Dates: start: 20081201
  3. EXELON [Suspect]
     Dosage: 2 MG PER 50 ML
     Route: 048
  4. ACETYLSALICYLIC ACID SRT [Suspect]
  5. ATENOLOL [Concomitant]
     Indication: BLOOD PRESSURE INCREASED
     Route: 048
  6. RISPERIDONE [Concomitant]
     Indication: SLEEP DISORDER
     Route: 048

REACTIONS (4)
  - CEREBROVASCULAR ACCIDENT [None]
  - CONVULSION [None]
  - DEATH [None]
  - RECTAL HAEMORRHAGE [None]
